FAERS Safety Report 9888088 (Version 1)
Quarter: 2014Q1

REPORT INFORMATION
  Report Type: Spontaneous
  Country: TR (occurrence: None)
  Receive Date: 20140207
  Receipt Date: 20140207
  Transmission Date: 20141002
  Serious: Yes (Other)
  Sender: FDA-Public Use
  Company Number: FK201400337

PATIENT
  Age: 78 Year
  Sex: Female

DRUGS (1)
  1. METHYLPREDNISOLONE (MANUFACTURER UNKNOWN) (METHYLPREDNISOLONE SODIUM SUCCINATE) (METHYLPREDNISOLONE SODIUM SUCCINATE) [Suspect]
     Indication: TEMPORAL ARTERITIS

REACTIONS (6)
  - Cytomegalovirus oesophagitis [None]
  - Diabetes mellitus [None]
  - Pneumonia [None]
  - Temporal arteritis [None]
  - Condition aggravated [None]
  - Treatment noncompliance [None]
